FAERS Safety Report 14870585 (Version 3)
Quarter: 2018Q2

REPORT INFORMATION
  Report Type: Spontaneous
  Country: US (occurrence: US)
  Receive Date: 20180509
  Receipt Date: 20180607
  Transmission Date: 20180711
  Serious: No
  Sender: FDA-Public Use
  Company Number: US-PFIZER INC-2018190568

PATIENT
  Age: 46 Year
  Sex: Female

DRUGS (1)
  1. BESPONSA [Suspect]
     Active Substance: INOTUZUMAB OZOGAMICIN
     Indication: ACUTE LYMPHOCYTIC LEUKAEMIA
     Dosage: 1 MG, CYCLIC (DAY 1, DAY 8, AND DAY 15)

REACTIONS (3)
  - Fatigue [Unknown]
  - Neoplasm progression [Unknown]
  - White blood cell count decreased [Unknown]
